FAERS Safety Report 4824225-6 (Version None)
Quarter: 2005Q4

REPORT INFORMATION
  Report Type: 
  Country: None (occurrence: None)
  Receive Date: 20051108
  Receipt Date: 20051027
  Transmission Date: 20060501
  Serious: Yes (Death)
  Sender: FDA-Public Use
  Company Number: MK200511-0005-1

PATIENT
  Age: 10 Month
  Sex: Female

DRUGS (1)
  1. METHADOSE [Suspect]
     Dosage: PO
     Route: 048

REACTIONS (9)
  - CARDIAC ARREST [None]
  - CYANOSIS [None]
  - DRUG EXPOSURE DURING PREGNANCY [None]
  - LIVIDITY [None]
  - NARCOTIC INTOXICATION [None]
  - NASOPHARYNGITIS [None]
  - VICTIM OF HOMICIDE [None]
  - VOMITING [None]
  - WRONG DRUG ADMINISTERED [None]
